FAERS Safety Report 19841078 (Version 1)
Quarter: 2021Q3

REPORT INFORMATION
  Report Type: Other
  Country: US (occurrence: US)
  Receive Date: 20210916
  Receipt Date: 20210916
  Transmission Date: 20211014
  Serious: No
  Sender: FDA-Public Use
  Company Number: US-LEADIANT BIOSCIENCES INC-2020STPI000496

PATIENT
  Sex: Male

DRUGS (14)
  1. TRAZODONE [Concomitant]
     Active Substance: TRAZODONE HYDROCHLORIDE
  2. SMZ?TMP [Concomitant]
     Active Substance: SULFAMETHOXAZOLE\TRIMETHOPRIM
  3. DIVALPROEX [Concomitant]
     Active Substance: DIVALPROEX SODIUM
  4. LEVETIRACETAM. [Concomitant]
     Active Substance: LEVETIRACETAM
  5. GUANFACINE. [Concomitant]
     Active Substance: GUANFACINE
  6. DEXAMETHASONE. [Concomitant]
     Active Substance: DEXAMETHASONE
  7. VIMPAT [Concomitant]
     Active Substance: LACOSAMIDE
  8. MATULANE [Suspect]
     Active Substance: PROCARBAZINE HYDROCHLORIDE
     Indication: ASTROCYTOMA
     Dosage: 50 MILLIGRAM TIMES 2 DAILY ON DAYS 8 TO 21 EVERY 56 DAY CYCLE
     Dates: start: 20200822
  9. NYSTATIN. [Concomitant]
     Active Substance: NYSTATIN
  10. CLONAZEPAM. [Concomitant]
     Active Substance: CLONAZEPAM
  11. BIOTENE [GLUCOSE OXIDASE;LACTOPEROXIDASE] [Concomitant]
  12. VITAMIN D [VITAMIN D NOS] [Concomitant]
     Active Substance: VITAMIN D NOS
  13. SERTRALINE [Concomitant]
     Active Substance: SERTRALINE HYDROCHLORIDE
  14. ARIPRAZOLE [Concomitant]
     Active Substance: ARIPIPRAZOLE

REACTIONS (2)
  - Fatigue [Not Recovered/Not Resolved]
  - Nausea [Not Recovered/Not Resolved]
